FAERS Safety Report 25808044 (Version 1)
Quarter: 2025Q3

REPORT INFORMATION
  Report Type: Spontaneous
  Country: US (occurrence: None)
  Receive Date: 20250916
  Receipt Date: 20250916
  Transmission Date: 20251020
  Serious: Yes (Hospitalization)
  Sender: FDA-CTU
  Company Number: None

PATIENT
  Age: 73 Year
  Sex: Female

DRUGS (11)
  1. RINVOQ [Suspect]
     Active Substance: UPADACITINIB
     Indication: Psoriasis
     Dosage: FREQUENCY : DAILY;?
     Route: 048
     Dates: start: 20250721, end: 20250909
  2. AMLODIPINE BESYLATE [Concomitant]
     Active Substance: AMLODIPINE BESYLATE
  3. CELECOXIB [Concomitant]
     Active Substance: CELECOXIB
  4. CETIRIZINE HYDROCHLORIDE [Concomitant]
     Active Substance: CETIRIZINE HYDROCHLORIDE
  5. HYDROCHLOROTHIAZIDE [Concomitant]
     Active Substance: HYDROCHLOROTHIAZIDE
  6. LEVOTHYROXINE [Concomitant]
     Active Substance: LEVOTHYROXINE
  7. Potassuim Chroride [Concomitant]
  8. MUPIROCIN [Concomitant]
     Active Substance: MUPIROCIN
  9. PREGABALIN [Concomitant]
     Active Substance: PREGABALIN
  10. Multivitamins for Adults [Concomitant]
  11. Calcium + Vit D Soft Gels [Concomitant]

REACTIONS (2)
  - Pulmonary thrombosis [None]
  - Therapy cessation [None]

NARRATIVE: CASE EVENT DATE: 20250909
